FAERS Safety Report 4710616-0 (Version None)
Quarter: 2005Q3

REPORT INFORMATION
  Report Type: 
  Country: None (occurrence: None)
  Receive Date: 20050707
  Receipt Date: 20050624
  Transmission Date: 20060218
  Serious: Yes (Death, Hospitalization)
  Sender: FDA-Public Use
  Company Number: 11694

PATIENT
  Age: 80 Year
  Sex: Female

DRUGS (5)
  1. METHOTREXATE [Suspect]
     Indication: RHEUMATOID ARTHRITIS
     Dosage: 2.5 MG PO
     Route: 048
     Dates: start: 19980101, end: 20050410
  2. FRUSEMIDE [Concomitant]
  3. DICLOFENAC SODIUM [Concomitant]
  4. FOLIC ACID [Concomitant]
  5. ALENDRONIC ACID [Concomitant]

REACTIONS (2)
  - PANCYTOPENIA [None]
  - RENAL FAILURE ACUTE [None]
